FAERS Safety Report 9988151 (Version 1)
Quarter: 2014Q1

REPORT INFORMATION
  Report Type: Spontaneous
  Country: CA (occurrence: CA)
  Receive Date: 20140308
  Receipt Date: 20140308
  Transmission Date: 20141002
  Serious: Yes (Hospitalization, Disabling, Other)
  Sender: FDA-Public Use
  Company Number: CA-009507513-1403CAN003052

PATIENT
  Age: 59 Year
  Sex: Female
  Weight: 72.11 kg

DRUGS (5)
  1. FOSAMAX [Suspect]
     Dosage: UNK
     Route: 065
  2. CARBOCAL D [Concomitant]
  3. LESCOL [Concomitant]
  4. MAXALT [Concomitant]
  5. PANTOLOC [Concomitant]

REACTIONS (4)
  - Clostridium difficile infection [Unknown]
  - Osteomyelitis [Unknown]
  - Tibia fracture [Unknown]
  - Tibia fracture [Unknown]
